FAERS Safety Report 8632654 (Version 2)
Quarter: 2013Q1

REPORT INFORMATION
  Report Type: Spontaneous
  Country: US (occurrence: US)
  Receive Date: 20120625
  Receipt Date: 20130116
  Transmission Date: 20140127
  Serious: Yes (Hospitalization)
  Sender: FDA-Public Use
  Company Number: US-ASTRAZENECA-2012SE40492

PATIENT
  Age: 77 Year
  Sex: Male

DRUGS (2)
  1. SYMBICORT PMDI [Suspect]
     Route: 055
  2. ANTIBIOTIC [Suspect]

REACTIONS (7)
  - Blood magnesium decreased [Unknown]
  - Renal disorder [Unknown]
  - Blood potassium decreased [Unknown]
  - Asbestosis [Unknown]
  - Asthma [Unknown]
  - Balance disorder [Unknown]
  - Fall [Unknown]
